FAERS Safety Report 19110245 (Version 2)
Quarter: 2021Q2

REPORT INFORMATION
  Report Type: Spontaneous
  Country: US (occurrence: US)
  Receive Date: 20210408
  Receipt Date: 20210518
  Transmission Date: 20210717
  Serious: Yes (Hospitalization, Other)
  Sender: FDA-Public Use
  Company Number: US-ASTRAZENECA-2021A262573

PATIENT
  Age: 901 Month
  Sex: Male
  Weight: 62.6 kg

DRUGS (6)
  1. METFORMIN [Concomitant]
     Active Substance: METFORMIN HYDROCHLORIDE
     Indication: BLOOD GLUCOSE INCREASED
  2. SYMBICORT [Suspect]
     Active Substance: BUDESONIDE\FORMOTEROL FUMARATE DIHYDRATE
     Indication: EMPHYSEMA
     Dosage: 160MCG/4.5MCG, TWO PUFFS TWICE A DAY
     Route: 055
     Dates: start: 201701
  3. OXYGEN. [Concomitant]
     Active Substance: OXYGEN
     Dosage: CONTINUOUSLY
  4. SINGULAIR [Concomitant]
     Active Substance: MONTELUKAST SODIUM
  5. PREDNISONE. [Suspect]
     Active Substance: PREDNISONE
     Indication: PNEUMONIA
     Route: 065
     Dates: start: 201712
  6. SYMBICORT [Suspect]
     Active Substance: BUDESONIDE\FORMOTEROL FUMARATE DIHYDRATE
     Indication: CHRONIC OBSTRUCTIVE PULMONARY DISEASE
     Dosage: 160MCG/4.5MCG, TWO PUFFS TWICE A DAY
     Route: 055
     Dates: start: 201701

REACTIONS (11)
  - Weight decreased [Recovered/Resolved]
  - Body height decreased [Not Recovered/Not Resolved]
  - Incorrect dose administered by device [Recovered/Resolved]
  - Lung neoplasm malignant [Recovering/Resolving]
  - Blood glucose increased [Recovered/Resolved]
  - Device delivery system issue [Unknown]
  - Product packaging quantity issue [Unknown]
  - Pulmonary mass [Unknown]
  - Product use issue [Recovered/Resolved]
  - Pneumonia [Recovered/Resolved]
  - Wrong technique in device usage process [Recovered/Resolved]

NARRATIVE: CASE EVENT DATE: 201712
